FAERS Safety Report 7906068-X (Version None)
Quarter: 2011Q4

REPORT INFORMATION
  Report Type: 
  Country: None (occurrence: None)
  Receive Date: 20111110
  Receipt Date: 20111110
  Transmission Date: 20120403
  Serious: No
  Sender: FDA-Public Use
  Company Number: None

PATIENT
  Age: 64 Year
  Sex: Male
  Weight: 75.749 kg

DRUGS (1)
  1. CITALOPRAM HYDROBROMIDE [Suspect]
     Indication: DEPRESSION
     Dosage: ONE TABLET
     Route: 048
     Dates: start: 20111108, end: 20111108

REACTIONS (4)
  - DRY MOUTH [None]
  - DIARRHOEA [None]
  - FAECES DISCOLOURED [None]
  - ABDOMINAL PAIN UPPER [None]
